FAERS Safety Report 4661195-8 (Version None)
Quarter: 2005Q2

REPORT INFORMATION
  Report Type: 
  Country: None (occurrence: None)
  Receive Date: 20050513
  Receipt Date: 20050505
  Transmission Date: 20051028
  Serious: Yes (Hospitalization)
  Sender: FDA-Public Use
  Company Number: US-BOEHRINGER INGELHEIM PHARMACEUTICALS, INC.-2005-BP-07532BP

PATIENT
  Sex: Male

DRUGS (12)
  1. SPIRIVA [Suspect]
     Indication: CHRONIC OBSTRUCTIVE PULMONARY DISEASE
     Route: 055
     Dates: start: 20050427
  2. MEDROL [Concomitant]
     Indication: CHRONIC OBSTRUCTIVE PULMONARY DISEASE
  3. ACCOLATE [Concomitant]
     Indication: CHRONIC OBSTRUCTIVE PULMONARY DISEASE
  4. LORAZEPAM [Concomitant]
     Indication: ANXIETY
  5. MUCINEX [Concomitant]
     Indication: CHRONIC OBSTRUCTIVE PULMONARY DISEASE
  6. ALBUTEROL [Concomitant]
     Indication: CHRONIC OBSTRUCTIVE PULMONARY DISEASE
  7. RA-COL-RITE [Concomitant]
     Indication: ABNORMAL FAECES
  8. CELEXA [Concomitant]
     Indication: DEPRESSION
  9. MAXISORB MAX FOR MEN [Concomitant]
     Indication: VITAMIN SUPPLEMENTATION
  10. NEXIUM [Concomitant]
     Indication: GASTROOESOPHAGEAL REFLUX DISEASE
  11. DARVOCET-N 100 [Concomitant]
     Indication: PAIN
  12. SOLU-MEDROL [Concomitant]
     Indication: CHRONIC OBSTRUCTIVE PULMONARY DISEASE
     Route: 042
     Dates: start: 20050502

REACTIONS (16)
  - BLOOD PRESSURE INCREASED [None]
  - BREATH ODOUR [None]
  - CHEST DISCOMFORT [None]
  - DISTURBANCE IN ATTENTION [None]
  - DRY THROAT [None]
  - DYSPHONIA [None]
  - DYSPNOEA [None]
  - EYE SWELLING [None]
  - HEART RATE IRREGULAR [None]
  - HUNGER [None]
  - LETHARGY [None]
  - PULMONARY CONGESTION [None]
  - PYREXIA [None]
  - SLEEP DISORDER [None]
  - TACHYCARDIA [None]
  - THIRST [None]
